FAERS Safety Report 21799884 (Version 1)
Quarter: 2022Q4

REPORT INFORMATION
  Report Type: Spontaneous
  Country: GB (occurrence: GB)
  Receive Date: 20221230
  Receipt Date: 20221230
  Transmission Date: 20230112
  Serious: Yes (Hospitalization)
  Sender: FDA-Public Use
  Company Number: GB-PFIZER INC-0003268201PHAMED

PATIENT
  Age: 46 Year
  Sex: Female

DRUGS (8)
  1. CYTARABINE [Suspect]
     Active Substance: CYTARABINE
     Indication: Acute myeloid leukaemia
     Dosage: UNK
     Route: 042
     Dates: start: 198502
  2. AMSACRINE [Concomitant]
     Active Substance: AMSACRINE
  3. DAUNORUBICIN [Concomitant]
     Active Substance: DAUNORUBICIN
     Route: 042
  4. ETOPOSIDE [Concomitant]
     Active Substance: ETOPOSIDE
  5. GENTAMICIN [Concomitant]
     Active Substance: GENTAMICIN
     Route: 042
  6. PIPERACILLIN [Concomitant]
     Active Substance: PIPERACILLIN
     Route: 042
  7. PREDNISOLONE [Concomitant]
     Active Substance: PREDNISOLONE
     Route: 048
  8. THIOGUANINE [Concomitant]
     Active Substance: THIOGUANINE
     Route: 042

REACTIONS (5)
  - Pyoderma gangrenosum [Recovered/Resolved]
  - Pancytopenia [Recovered/Resolved]
  - Purpura [Recovered/Resolved]
  - Sepsis [Recovered/Resolved]
  - Pyrexia [Recovered/Resolved]

NARRATIVE: CASE EVENT DATE: 19850101
